FAERS Safety Report 4289602-3 (Version None)
Quarter: 2004Q1

REPORT INFORMATION
  Report Type: 
  Country: None (occurrence: None)
  Receive Date: 20040203
  Receipt Date: 20030311
  Transmission Date: 20041129
  Serious: Yes (Life-Threatening, Hospitalization)
  Sender: FDA-Public Use
  Company Number: 200314110BWH

PATIENT
  Age: 52 Year
  Sex: Female

DRUGS (9)
  1. AVELOX [Suspect]
     Indication: BRONCHITIS
     Dosage: 400 MG, ONCE, ORAL
     Route: 048
     Dates: start: 20030225
  2. ASPIRIN [Concomitant]
  3. ATROVENT [Concomitant]
  4. ALBUTEROL [Concomitant]
  5. ADVAIR DISKUS 100/50 [Concomitant]
  6. PAXIL [Concomitant]
  7. TRAZODONE HCL [Concomitant]
  8. NITROGLYCERIN [Concomitant]
  9. OXYGEN [Concomitant]

REACTIONS (5)
  - ANAPHYLACTIC REACTION [None]
  - ANAPHYLACTIC SHOCK [None]
  - PULSE ABSENT [None]
  - RESPIRATORY ARREST [None]
  - RESPIRATORY FAILURE [None]
